FAERS Safety Report 7210611-6 (Version None)
Quarter: 2011Q1

REPORT INFORMATION
  Report Type: 
  Country: None (occurrence: None)
  Receive Date: 20110105
  Receipt Date: 20101230
  Transmission Date: 20110831
  Serious: Yes (Other)
  Sender: FDA-Public Use
  Company Number: PHHY2010US89572

PATIENT
  Sex: Female

DRUGS (3)
  1. DETROL [Concomitant]
     Dosage: UNK
  2. CYMBALTA [Concomitant]
     Dosage: UNK
  3. LAMISIL [Suspect]
     Dosage: 250 MG, UNK
     Route: 048
     Dates: start: 20101122

REACTIONS (6)
  - DYSGEUSIA [None]
  - AGEUSIA [None]
  - EATING DISORDER [None]
  - DEHYDRATION [None]
  - HEPATIC ENZYME INCREASED [None]
  - MALNUTRITION [None]
